FAERS Safety Report 8433236-3 (Version None)
Quarter: 2012Q2

REPORT INFORMATION
  Report Type: 
  Country: None (occurrence: None)
  Receive Date: 20120613
  Receipt Date: 20120531
  Transmission Date: 20120825
  Serious: Yes (Other)
  Sender: FDA-Public Use
  Company Number: ES-ROCHE-686509

PATIENT
  Sex: Female

DRUGS (8)
  1. FERPLEX [Concomitant]
  2. DEFLAZACORT [Concomitant]
  3. HYDROXYCHLOROQUINE SULFATE [Concomitant]
  4. AZATHIOPRINE [Concomitant]
  5. MABTHERA [Suspect]
     Indication: PULMONARY AMYLOIDOSIS
     Dosage: OTHER INDICATION: SYSTEMIC LUPUS ERYTHEMATOSUS
     Route: 042
     Dates: start: 20070401, end: 20080401
  6. CYCLOPHOSPHAMIDE [Concomitant]
     Indication: PULMONARY AMYLOIDOSIS
     Dosage: OTHER INDICATION: SYSTEMIC LUPUS ERYTHEMATOSUS. DAY 1 AND 15 OF EACH CYCLE. FOR 1 MONTH/6 MONTH
     Route: 042
     Dates: start: 20070401, end: 20080401
  7. ACETYLSALICYLIC ACID SRT [Concomitant]
  8. OMEPRAZOLE [Concomitant]

REACTIONS (2)
  - PROGRESSIVE MULTIFOCAL LEUKOENCEPHALOPATHY [None]
  - HYPOAESTHESIA [None]
